FAERS Safety Report 20417479 (Version 1)
Quarter: 2022Q1

REPORT INFORMATION
  Report Type: Report from Study
  Country: MX (occurrence: MX)
  Receive Date: 20220202
  Receipt Date: 20220202
  Transmission Date: 20220423
  Serious: Yes (Other)
  Sender: FDA-Public Use
  Company Number: MX-NOVARTISPH-NVSC2021MX252417

PATIENT
  Age: 68 Year
  Sex: Male
  Weight: 65 kg

DRUGS (8)
  1. ENTRESTO [Suspect]
     Active Substance: SACUBITRIL\VALSARTAN
     Indication: Cardiomyopathy
     Dosage: 0.5 DF, QD (50MG)
     Route: 065
     Dates: start: 20211026
  2. ENTRESTO [Suspect]
     Active Substance: SACUBITRIL\VALSARTAN
     Indication: Blood pressure increased
     Dosage: 50 MG, QD
     Route: 048
  3. ENTRESTO [Suspect]
     Active Substance: SACUBITRIL\VALSARTAN
     Indication: Arterial occlusive disease
     Dosage: 0.25 MG, QD (50 MG)
     Route: 048
  4. HYDROCHLOROTHIAZIDE\VALSARTAN [Suspect]
     Active Substance: HYDROCHLOROTHIAZIDE\VALSARTAN
     Indication: Hypertension
     Dosage: 1 UNK, QD(30 YEARS AGO)(STOPPED 10 YEARS AGO)
     Route: 048
  5. CONCORDIN [Concomitant]
     Indication: Arterial disorder
     Dosage: 0.5 DF, QOD (1.25MG0
     Route: 048
     Dates: start: 202101
  6. SPIRONOLACTONE [Concomitant]
     Active Substance: SPIRONOLACTONE
     Indication: Polyuria
     Dosage: 100 MG, QD
     Route: 048
     Dates: start: 202101
  7. LASIX [Concomitant]
     Active Substance: FUROSEMIDE
     Indication: Polyuria
     Dosage: 1 UNK, QD
     Route: 048
     Dates: start: 202101
  8. ASPIRIN [Concomitant]
     Active Substance: ASPIRIN
     Indication: Product used for unknown indication
     Dosage: 1 DF(STARTED 30 YEARS AGO)
     Route: 048

REACTIONS (6)
  - Arterial occlusive disease [Unknown]
  - Blood pressure decreased [Recovered/Resolved]
  - Dizziness [Not Recovered/Not Resolved]
  - Inappropriate schedule of product administration [Unknown]
  - Wrong technique in product usage process [Unknown]
  - Product use in unapproved indication [Unknown]

NARRATIVE: CASE EVENT DATE: 20211001
